FAERS Safety Report 4694384-7 (Version None)
Quarter: 2005Q2

REPORT INFORMATION
  Report Type: 
  Country: None (occurrence: None)
  Receive Date: 20050614
  Receipt Date: 20050309
  Transmission Date: 20051028
  Serious: No
  Sender: FDA-Public Use
  Company Number: USA050392752

PATIENT
  Age: 79 Year
  Sex: Male

DRUGS (5)
  1. CIALIS [Suspect]
     Indication: ERECTILE DYSFUNCTION
     Dosage: 10 MG
     Dates: start: 20050306
  2. TYLENOL [Concomitant]
  3. PRAVACHOL [Concomitant]
  4. ASPIRIN [Concomitant]
  5. RANITIDINE HCL [Concomitant]

REACTIONS (3)
  - DRUG INEFFECTIVE [None]
  - MYALGIA [None]
  - THERAPEUTIC RESPONSE DECREASED [None]
